FAERS Safety Report 9739570 (Version 2)
Quarter: 2013Q4

REPORT INFORMATION
  Report Type: Spontaneous
  Country: US (occurrence: US)
  Receive Date: 20131209
  Receipt Date: 20131213
  Transmission Date: 20140711
  Serious: Yes (Death, Hospitalization)
  Sender: FDA-Public Use
  Company Number: US-B.I. PHARMACEUTICALS,INC./RIDGEFIELD-2013-BI-40894BP

PATIENT
  Age: 74 Year
  Sex: Male

DRUGS (11)
  1. SPIRIVA [Suspect]
     Indication: CHRONIC OBSTRUCTIVE PULMONARY DISEASE
     Dosage: 18 MCG
     Route: 055
     Dates: start: 2008
  2. PRADAXA [Suspect]
     Indication: HEART RATE IRREGULAR
     Dosage: 300 MG
     Route: 048
     Dates: start: 201108
  3. LANOXIN [Concomitant]
     Indication: HEART RATE IRREGULAR
     Route: 048
  4. ADVAIR [Concomitant]
  5. VENTOLIN [Concomitant]
  6. ZESTRIL [Concomitant]
  7. FUROSEMIDE [Concomitant]
  8. METOLAZONE [Concomitant]
  9. GLYBURIDE [Concomitant]
  10. SYNTHROID [Concomitant]
  11. LOVAZA [Concomitant]

REACTIONS (1)
  - Cardiac failure [Fatal]
